FAERS Safety Report 7552334-X (Version None)
Quarter: 2011Q2

REPORT INFORMATION
  Report Type: 
  Country: None (occurrence: None)
  Receive Date: 20110616
  Receipt Date: 20060522
  Transmission Date: 20111010
  Serious: Yes (Life-Threatening, Hospitalization, Other)
  Sender: FDA-Public Use
  Company Number: PHFR2006GB01012

PATIENT
  Sex: Male

DRUGS (2)
  1. AMISULPRIDE [Concomitant]
     Indication: SCHIZOPHRENIA
     Dosage: 400 MG, UNK
     Route: 065
  2. CLOZAPINE [Suspect]
     Indication: SCHIZOPHRENIA
     Dosage: UNK, UNK
     Route: 048
     Dates: start: 19970715, end: 20060505

REACTIONS (13)
  - BURKITT'S LYMPHOMA [None]
  - LOWER RESPIRATORY TRACT INFECTION [None]
  - ASTHENIA [None]
  - WEIGHT DECREASED [None]
  - INFECTION [None]
  - AGRANULOCYTOSIS [None]
  - WHITE BLOOD CELL COUNT DECREASED [None]
  - ABDOMINAL NEOPLASM [None]
  - NEUTROPHIL COUNT DECREASED [None]
  - HAEMOGLOBIN DECREASED [None]
  - PLATELET COUNT DECREASED [None]
  - PAIN [None]
  - ANAEMIA [None]
